FAERS Safety Report 15808513 (Version 1)
Quarter: 2019Q1

REPORT INFORMATION
  Report Type: Report from Study
  Country: US (occurrence: US)
  Receive Date: 20190110
  Receipt Date: 20190110
  Transmission Date: 20190417
  Serious: Yes (Hospitalization)
  Sender: FDA-Public Use
  Company Number: US-PFIZER INC-2019008268

PATIENT
  Sex: Female
  Weight: 70 kg

DRUGS (10)
  1. VINCRISTINE SULFATE. [Suspect]
     Active Substance: VINCRISTINE SULFATE
     Indication: B PRECURSOR TYPE ACUTE LEUKAEMIA
     Dosage: UNK, CYCLIC (TOTAL DOSE ADMINISTERED IN CYCLE 4 WAS 8 MG)
     Dates: end: 20181214
  2. CYTARABINE. [Suspect]
     Active Substance: CYTARABINE
     Indication: B PRECURSOR TYPE ACUTE LEUKAEMIA
     Dosage: UNK, CYCLIC (TOTAL DOSE ADMINISTERED IN CYCLE 4 WAS 1040 MG)
     Dates: end: 20181210
  3. INOTUZUMAB OZOGAMICIN [Suspect]
     Active Substance: INOTUZUMAB OZOGAMICIN
     Indication: B PRECURSOR TYPE ACUTE LEUKAEMIA
     Dosage: UNK UNK, CYCLIC
     Dates: end: 20180516
  4. CYCLOPHOSPHAMIDE. [Suspect]
     Active Substance: CYCLOPHOSPHAMIDE
     Indication: B PRECURSOR TYPE ACUTE LEUKAEMIA
     Dosage: UNK, CYCLIC (TOTAL DOSE ADMINISTERED CYCLE 4 WAS 627 ML)
     Dates: end: 20181130
  5. RITUXIMAB. [Suspect]
     Active Substance: RITUXIMAB
     Indication: B PRECURSOR TYPE ACUTE LEUKAEMIA
     Dosage: UNK, CYCLIC (TOTAL DOSE ADMINISTERED IN CYCLE 4 WAS 1297.6 MG)
     Dates: end: 20181109
  6. THIOGUANINE [Suspect]
     Active Substance: THIOGUANINE
     Indication: B PRECURSOR TYPE ACUTE LEUKAEMIA
     Dosage: UNK UNK, CYCLIC (TOTAL DOSE ADMINISTERED IN CYCLE 4 WAS 1680 MG)
     Dates: end: 20181213
  7. DOXORUBICIN HCL [Suspect]
     Active Substance: DOXORUBICIN HYDROCHLORIDE
     Indication: B PRECURSOR TYPE ACUTE LEUKAEMIA
     Dosage: UNK, CYCLIC (TOTAL DOSE ADMINISTERED IN CYCLE 4 WAS 129 MG)
     Dates: end: 20181116
  8. DEXAMETHASONE. [Suspect]
     Active Substance: DEXAMETHASONE
     Indication: B PRECURSOR TYPE ACUTE LEUKAEMIA
     Dosage: UNK, CYCLIC (TOTAL DOSE ADMINISTERED IN CYCLE 4 WAS 238 MG)
     Dates: end: 20181122
  9. METHOTREXATE SODIUM. [Suspect]
     Active Substance: METHOTREXATE SODIUM
     Indication: B PRECURSOR TYPE ACUTE LEUKAEMIA
     Dosage: UNK, CYCLIC (TOTAL DOSE ADMINISTERED IN CYCLE 4 WAS 45 MG)
     Dates: end: 20181214
  10. ONCASPAR [Suspect]
     Active Substance: PEGASPARGASE
     Indication: B PRECURSOR TYPE ACUTE LEUKAEMIA
     Dosage: UNK, CYCLIC (TOTAL DOSE ADMINISTERED THIS CYCLE 4 WAS 6900 UNIT)
     Dates: end: 20181214

REACTIONS (1)
  - Febrile neutropenia [Unknown]

NARRATIVE: CASE EVENT DATE: 20181221
